FAERS Safety Report 6312365-4 (Version None)
Quarter: 2009Q3

REPORT INFORMATION
  Report Type: 
  Country: None (occurrence: None)
  Receive Date: 20090817
  Receipt Date: 20090812
  Transmission Date: 20100115
  Serious: Yes (Hospitalization, Other)
  Sender: FDA-Public Use
  Company Number: US-ELI_LILLY_AND_COMPANY-US200908001343

PATIENT
  Sex: Female
  Weight: 58.503 kg

DRUGS (11)
  1. GEMCITABINE HCL [Suspect]
     Indication: NON-SMALL CELL LUNG CANCER METASTATIC
     Dosage: UNK, UNK
     Dates: start: 20090721, end: 20090721
  2. CISPLATIN [Concomitant]
     Indication: NON-SMALL CELL LUNG CANCER
     Dosage: UNK, UNK
     Dates: start: 20090721, end: 20090721
  3. ALOXI [Concomitant]
     Indication: PREMEDICATION
     Dates: start: 20090721, end: 20090721
  4. VITAMIN B-12 [Concomitant]
     Indication: PROPHYLAXIS
  5. FOLIC ACID [Concomitant]
     Indication: PROPHYLAXIS
     Dates: start: 20090212
  6. EPOGEN [Concomitant]
     Indication: ANAEMIA
     Dates: start: 20090630
  7. DEXAMETHASONE [Concomitant]
     Indication: NAUSEA
     Dates: start: 20090212
  8. ZOFRAN [Concomitant]
     Indication: NAUSEA
     Dosage: UNK, EVERY 8 HRS
     Dates: start: 20090212
  9. REGLAN [Concomitant]
     Indication: NAUSEA
     Dates: start: 20090212
  10. VICODIN [Concomitant]
     Indication: PAIN
     Dates: start: 20090630
  11. MS CONTIN [Concomitant]
     Indication: PAIN
     Dosage: 30 MG, 2/D
     Dates: start: 20090721, end: 20090721

REACTIONS (8)
  - ASTHENIA [None]
  - CONFUSIONAL STATE [None]
  - HYPOVOLAEMIA [None]
  - MEMORY IMPAIRMENT [None]
  - NAUSEA [None]
  - RENAL FAILURE ACUTE [None]
  - RENAL TUBULAR NECROSIS [None]
  - VOMITING [None]
